FAERS Safety Report 17983407 (Version 1)
Quarter: 2020Q3

REPORT INFORMATION
  Report Type: Spontaneous
  Country: US (occurrence: US)
  Receive Date: 20200706
  Receipt Date: 20200706
  Transmission Date: 20201103
  Serious: Yes (Hospitalization)
  Sender: FDA-Public Use
  Company Number: US-BAYER-2020-129053

PATIENT
  Age: 31 Year
  Sex: Female

DRUGS (1)
  1. SKYLA [Suspect]
     Active Substance: LEVONORGESTREL
     Indication: CONTRACEPTION
     Dosage: 14 ?G PER DAY CONTINUOUSLY
     Route: 015
     Dates: start: 20171114, end: 202006

REACTIONS (5)
  - Syncope [None]
  - Abortion spontaneous [None]
  - Pregnancy with contraceptive device [None]
  - Drug ineffective [None]
  - Genital haemorrhage [None]

NARRATIVE: CASE EVENT DATE: 20200620
